FAERS Safety Report 7251195-6 (Version None)
Quarter: 2011Q1

REPORT INFORMATION
  Report Type: 
  Country: None (occurrence: None)
  Receive Date: 20110128
  Receipt Date: 20110116
  Transmission Date: 20110831
  Serious: Yes (Other)
  Sender: FDA-Public Use
  Company Number: US-BAYER-2011-005428

PATIENT
  Sex: Male
  Weight: 79.365 kg

DRUGS (6)
  1. ALEVE (CAPLET) [Suspect]
     Dosage: 200 TABLETS EVERY 4 DAYS
  2. ALEVE (CAPLET) [Suspect]
     Dosage: 1760 MG EVERY 3 TO 4 HOURS
     Route: 048
  3. ALEVE (CAPLET) [Suspect]
     Indication: ARTHRALGIA
     Dosage: 440 MG, QD
     Route: 048
  4. IBUPROFEN [Suspect]
  5. ALEVE (CAPLET) [Suspect]
     Dosage: 440 MG, IRR
     Route: 048
  6. ALEVE (CAPLET) [Suspect]
     Dosage: 880 MG EVERY 3 TO 4 HOURS
     Route: 048

REACTIONS (7)
  - HYPOAESTHESIA [None]
  - PAIN [None]
  - DIARRHOEA [None]
  - CONSTIPATION [None]
  - INSOMNIA [None]
  - FATIGUE [None]
  - MALIGNANT NEOPLASM OF EYELID [None]
